FAERS Safety Report 12054300 (Version 1)
Quarter: 2016Q1

REPORT INFORMATION
  Report Type: Spontaneous
  Country: JP (occurrence: JP)
  Receive Date: 20160209
  Receipt Date: 20160209
  Transmission Date: 20160526
  Serious: Yes (Other)
  Sender: FDA-Public Use
  Company Number: JP-PFIZER INC-2016064539

PATIENT

DRUGS (5)
  1. MEROPENEM. [Concomitant]
     Active Substance: MEROPENEM
     Indication: SEPSIS
  2. HYDROCORTISONE. [Suspect]
     Active Substance: HYDROCORTISONE
     Indication: SEPTIC SHOCK
  3. AMIKACIN [Concomitant]
     Active Substance: AMIKACIN
     Indication: SEPSIS
  4. VANCOMYCIN [Concomitant]
     Active Substance: VANCOMYCIN
     Indication: SEPSIS
  5. CEFTAZIDIM [Concomitant]
     Active Substance: CEFTAZIDIME
     Indication: SEPSIS

REACTIONS (2)
  - Cytomegalovirus infection [Recovered/Resolved]
  - Cytokine storm [Recovered/Resolved]
